FAERS Safety Report 6893450-5 (Version None)
Quarter: 2010Q3

REPORT INFORMATION
  Report Type: 
  Country: None (occurrence: None)
  Receive Date: 20100731
  Receipt Date: 20090916
  Transmission Date: 20110219
  Serious: No
  Sender: FDA-Public Use
  Company Number: US-PFIZER INC-2009246862

PATIENT
  Sex: Female
  Weight: 47.627 kg

DRUGS (3)
  1. NEURONTIN [Suspect]
     Indication: PROCEDURAL PAIN
     Dosage: 600MG/DAY
     Dates: start: 20090615
  2. ACETAMINOPHEN [Concomitant]
     Dosage: UNK
  3. CLIMARA [Concomitant]
     Dosage: UNK

REACTIONS (3)
  - DYSPNOEA [None]
  - OROPHARYNGEAL PAIN [None]
  - PALPITATIONS [None]
